FAERS Safety Report 23343285 (Version 2)
Quarter: 2024Q1

REPORT INFORMATION
  Report Type: Spontaneous
  Country: US (occurrence: US)
  Receive Date: 20231227
  Receipt Date: 20240216
  Transmission Date: 20240410
  Serious: No
  Sender: FDA-Public Use
  Company Number: US-JNJFOC-20231226619

PATIENT
  Age: 66 Year
  Sex: Female

DRUGS (1)
  1. WOMENS ROGAINE UNSCENTED [Suspect]
     Active Substance: MINOXIDIL
     Indication: Alopecia
     Dosage: PRODUCT STARTED FOR AT LEAST 10 YEARS. AROUND THE TOP OF THE HEAD, HALF A CAPFUL, APPLY TO SCALP
     Route: 061
     Dates: start: 2014

REACTIONS (2)
  - Hair texture abnormal [Not Recovered/Not Resolved]
  - Application site pruritus [Not Recovered/Not Resolved]

NARRATIVE: CASE EVENT DATE: 20231208
